APPROVED DRUG PRODUCT: LOSARTAN POTASSIUM
Active Ingredient: LOSARTAN POTASSIUM
Strength: 25MG
Dosage Form/Route: TABLET;ORAL
Application: A215959 | Product #001 | TE Code: AB
Applicant: GRANULES INDIA LTD
Approved: Feb 23, 2023 | RLD: No | RS: No | Type: RX